FAERS Safety Report 6101482-X (Version None)
Quarter: 2009Q1

REPORT INFORMATION
  Report Type: 
  Country: None (occurrence: None)
  Receive Date: 20090227
  Receipt Date: 20090219
  Transmission Date: 20090719
  Serious: Yes (Other)
  Sender: FDA-Public Use
  Company Number: CIO08019575

PATIENT
  Age: 74 Year
  Sex: Female
  Weight: 77.1 kg

DRUGS (4)
  1. CREST PRO-HEALTH TOOTHPASTE, CLEAN MINT FLAVOR(SODIUM POLYPHOSPHATE 13 [Suspect]
     Indication: DENTAL DISORDER PROPHYLAXIS
     Dosage: 1 APPLIC, 2 /DAY, INTRAORAL
     Route: 048
     Dates: start: 20081115, end: 20081115
  2. CALCIUM (CALCIUM) [Concomitant]
  3. CENTRUM SILVER	/01292501/  (ASCORBIC ACID, CALCIUM, MINERALS NOS, RETI [Concomitant]
  4. EXTRA STRENGTH TYLENOL [Concomitant]

REACTIONS (21)
  - CHEILITIS [None]
  - DYSPHAGIA [None]
  - DYSPHONIA [None]
  - DYSPNOEA [None]
  - FACIAL PAIN [None]
  - FEELING ABNORMAL [None]
  - GINGIVAL ERYTHEMA [None]
  - GINGIVAL PAIN [None]
  - GINGIVAL SWELLING [None]
  - HEADACHE [None]
  - INSOMNIA [None]
  - LIP PAIN [None]
  - LIP SWELLING [None]
  - ORAL PAIN [None]
  - OROPHARYNGEAL PAIN [None]
  - PAIN [None]
  - PARAESTHESIA ORAL [None]
  - PHARYNGEAL ERYTHEMA [None]
  - STOMATITIS [None]
  - SWELLING FACE [None]
  - THROAT IRRITATION [None]
